FAERS Safety Report 10073415 (Version 1)
Quarter: 2014Q2

REPORT INFORMATION
  Report Type: Spontaneous
  Country: US (occurrence: US)
  Receive Date: 20140411
  Receipt Date: 20140411
  Transmission Date: 20141212
  Serious: Yes (Other)
  Sender: FDA-Public Use
  Company Number: PHEH2014US007036

PATIENT
  Sex: 0

DRUGS (1)
  1. ZOMETA [Suspect]

REACTIONS (1)
  - Osteonecrosis of jaw [Unknown]
